FAERS Safety Report 4440049-6 (Version None)
Quarter: 2004Q3

REPORT INFORMATION
  Report Type: 
  Country: None (occurrence: None)
  Receive Date: 20040902
  Receipt Date: 20040823
  Transmission Date: 20050211
  Serious: Yes (Hospitalization, Other)
  Sender: FDA-Public Use
  Company Number: US-GLAXOSMITHKLINE-A0523329A

PATIENT
  Age: 38 Year
  Sex: Male
  Weight: 77.2 kg

DRUGS (6)
  1. LEXIVA [Suspect]
     Indication: HIV INFECTION
     Dosage: 700MG TWICE PER DAY
     Route: 048
     Dates: start: 20040816, end: 20040823
  2. ABACAVIR SULFATE + LAMIVUDINE [Suspect]
     Indication: HIV INFECTION
     Route: 048
     Dates: start: 20040816, end: 20040823
  3. RITONAVIR [Suspect]
     Indication: HIV INFECTION
     Dosage: 100MG TWICE PER DAY
     Route: 048
     Dates: start: 20040816, end: 20040823
  4. ANDROGEL [Concomitant]
     Dosage: 1%DS AS REQUIRED
     Route: 061
     Dates: start: 20030101
  5. MULTIPLE VITAMIN [Concomitant]
     Dosage: 1TAB PER DAY
     Route: 048
  6. ANTIOXIDANT [Concomitant]
     Dosage: 1TAB PER DAY
     Route: 048

REACTIONS (17)
  - ADVERSE DRUG REACTION [None]
  - ARTHRALGIA [None]
  - CHILLS [None]
  - CONJUNCTIVITIS [None]
  - DIARRHOEA [None]
  - DIZZINESS [None]
  - FATIGUE [None]
  - HALLUCINATION [None]
  - HEADACHE [None]
  - MALAISE [None]
  - MYALGIA [None]
  - NAUSEA [None]
  - PYREXIA [None]
  - RASH [None]
  - RESPIRATORY RATE INCREASED [None]
  - TACHYCARDIA [None]
  - VOMITING [None]
